FAERS Safety Report 8266728-0 (Version None)
Quarter: 2012Q2

REPORT INFORMATION
  Report Type: 
  Country: None (occurrence: None)
  Receive Date: 20120409
  Receipt Date: 20120327
  Transmission Date: 20120825
  Serious: Yes (Hospitalization, Other)
  Sender: FDA-Public Use
  Company Number: FR-BIOGENIDEC-2012BI010380

PATIENT
  Age: 53 Year
  Sex: Female

DRUGS (3)
  1. ESCITALOPRAM OXALATE [Concomitant]
     Dates: start: 20090101
  2. TYSABRI [Suspect]
     Indication: MULTIPLE SCLEROSIS
     Route: 042
     Dates: start: 20080601, end: 20090501
  3. TYSABRI [Suspect]
     Route: 042
     Dates: start: 20091001, end: 20120101

REACTIONS (2)
  - PROGRESSIVE MULTIFOCAL LEUKOENCEPHALOPATHY [None]
  - CONVULSION [None]
